FAERS Safety Report 4464984-8 (Version None)
Quarter: 2004Q4

REPORT INFORMATION
  Report Type: 
  Country: None (occurrence: None)
  Receive Date: 20041004
  Receipt Date: 20040512
  Transmission Date: 20050328
  Serious: No
  Sender: FDA-Public Use
  Company Number: 370285

PATIENT
  Age: 58 Year
  Sex: Female
  Weight: 66.4 kg

DRUGS (1)
  1. COREG [Suspect]
     Indication: DRUG USE FOR UNKNOWN INDICATION
     Dosage: 6.25MG UNKNOWN
     Route: 065
     Dates: start: 20040404, end: 20040504

REACTIONS (1)
  - ALOPECIA [None]
